FAERS Safety Report 8393259-X (Version None)
Quarter: 2012Q2

REPORT INFORMATION
  Report Type: 
  Country: None (occurrence: None)
  Receive Date: 20120529
  Receipt Date: 20120521
  Transmission Date: 20120825
  Serious: Yes (Hospitalization)
  Sender: FDA-Public Use
  Company Number: FR-ROCHE-1071160

PATIENT
  Sex: Female

DRUGS (6)
  1. PREDNISONE TAB [Suspect]
     Indication: MANTLE CELL LYMPHOMA
     Dates: start: 20120126, end: 20120130
  2. DOXORUBICIN HCL [Suspect]
     Indication: MANTLE CELL LYMPHOMA
     Dates: start: 20120126, end: 20120130
  3. VINCRISTINE [Suspect]
     Indication: MANTLE CELL LYMPHOMA
     Dates: start: 20120126, end: 20120130
  4. TEMSIROLIMUS [Suspect]
     Indication: MANTLE CELL LYMPHOMA
     Dates: start: 20120127, end: 20120202
  5. MABTHERA [Suspect]
     Indication: MANTLE CELL LYMPHOMA
     Dates: start: 20120126, end: 20120130
  6. CYCLOPHOSPHAMIDE [Suspect]
     Indication: MANTLE CELL LYMPHOMA
     Dates: start: 20120126, end: 20120130

REACTIONS (3)
  - FEBRILE BONE MARROW APLASIA [None]
  - GASTROINTESTINAL HAEMORRHAGE [None]
  - FEBRILE NEUTROPENIA [None]
